FAERS Safety Report 4416959-2 (Version None)
Quarter: 2004Q3

REPORT INFORMATION
  Report Type: 
  Country: None (occurrence: None)
  Receive Date: 20040806
  Receipt Date: 20031003
  Transmission Date: 20050211
  Serious: No
  Sender: FDA-Public Use
  Company Number: US-GLAXOSMITHKLINE-A0428724A

PATIENT
  Age: 63 Year
  Sex: Male

DRUGS (1)
  1. STELAZINE [Suspect]
     Indication: ILL-DEFINED DISORDER
     Route: 048
     Dates: start: 19700101

REACTIONS (1)
  - ANXIETY [None]
